FAERS Safety Report 7068982-X (Version None)
Quarter: 2010Q4

REPORT INFORMATION
  Report Type: 
  Country: None (occurrence: None)
  Receive Date: 20101020
  Receipt Date: 20101006
  Transmission Date: 20110411
  Serious: Yes (Life-Threatening, Other)
  Sender: FDA-Public Use
  Company Number: 1000016858

PATIENT
  Age: 72 Year
  Sex: Female

DRUGS (5)
  1. ESCITALOPRAM [Suspect]
     Indication: DEPRESSION
     Dosage: 10 MG (10 MG,1 IN 1 D),ORAL
     Route: 048
     Dates: start: 20100914, end: 20100925
  2. AMITRIPTYLINE (AMITRIPTYLINE (AMITRIPTYLINE) [Concomitant]
  3. MIRTAZAPINE [Concomitant]
  4. QUETIAPINE (QUETIAPINE) (QUETIAPINE) [Concomitant]
  5. VENLAFAXINE HCL [Concomitant]

REACTIONS (1)
  - CONVULSION [None]
